FAERS Safety Report 9856100 (Version 2)
Quarter: 2014Q1

REPORT INFORMATION
  Report Type: Spontaneous
  Country: US (occurrence: US)
  Receive Date: 20140130
  Receipt Date: 20140213
  Transmission Date: 20141002
  Serious: Yes (Life-Threatening, Hospitalization, Other)
  Sender: FDA-Public Use
  Company Number: US-B.I. PHARMACEUTICALS,INC./RIDGEFIELD-2014-BI-03258BP

PATIENT
  Age: 60 Year
  Sex: Female
  Weight: 77 kg

DRUGS (7)
  1. PRADAXA [Suspect]
     Indication: ATRIAL FIBRILLATION
     Dosage: 300 MG
     Route: 048
     Dates: start: 201308, end: 201401
  2. CARDIZEM [Concomitant]
     Indication: HEART RATE DECREASED
     Dosage: 180 MG
     Route: 048
     Dates: start: 2007
  3. METFORMIN [Concomitant]
     Indication: DIABETES MELLITUS
     Dosage: 1000 MG
     Route: 048
     Dates: start: 2007
  4. SINGULAIR [Concomitant]
     Indication: UPPER-AIRWAY COUGH SYNDROME
     Dosage: 10 MG
     Route: 048
     Dates: start: 2012
  5. RESTASIS [Concomitant]
     Indication: DRY EYE
     Dates: start: 2011
  6. LIPITOR [Concomitant]
     Indication: CORONARY ARTERY DISEASE
     Dosage: 10 MG
     Route: 048
     Dates: start: 2004, end: 201312
  7. DIOVAN [Concomitant]
     Indication: HYPERTENSION
     Dosage: 325 MG
     Route: 048
     Dates: start: 2000

REACTIONS (5)
  - Cardiac tamponade [Recovered/Resolved]
  - Pericardial haemorrhage [Recovered/Resolved]
  - Pleural effusion [Not Recovered/Not Resolved]
  - Haemoglobin decreased [Unknown]
  - Haematuria [Recovered/Resolved]
